FAERS Safety Report 13661230 (Version 2)
Quarter: 2020Q2

REPORT INFORMATION
  Report Type: Report from Study
  Country: US (occurrence: US)
  Receive Date: 20170616
  Receipt Date: 20200604
  Transmission Date: 20200713
  Serious: No
  Sender: FDA-Public Use
  Company Number: US-US WORLDMEDS, LLC-USW201702-000273

PATIENT
  Sex: Female

DRUGS (15)
  1. NEUPRO [Concomitant]
     Active Substance: ROTIGOTINE
  2. LEXAPRO [Concomitant]
     Active Substance: ESCITALOPRAM OXALATE
  3. VALIUM [Concomitant]
     Active Substance: DIAZEPAM
     Indication: ANXIETY
  4. APOKYN [Suspect]
     Active Substance: APOMORPHINE HYDROCHLORIDE
     Indication: PARKINSON^S DISEASE
     Route: 058
  5. RYTARY [Concomitant]
     Active Substance: CARBIDOPA\LEVODOPA
  6. SINEMET [Concomitant]
     Active Substance: CARBIDOPA\LEVODOPA
  7. CLONOPIN [Concomitant]
     Active Substance: CLONAZEPAM
  8. APOKYN [Suspect]
     Active Substance: APOMORPHINE HYDROCHLORIDE
     Route: 058
     Dates: start: 201411
  9. AMANTADINE. [Concomitant]
     Active Substance: AMANTADINE HYDROCHLORIDE
  10. TIGAN [Concomitant]
     Active Substance: TRIMETHOBENZAMIDE HYDROCHLORIDE
     Indication: NAUSEA
  11. ZANAFLEX [Concomitant]
     Active Substance: TIZANIDINE HYDROCHLORIDE
  12. TRAMADOL. [Concomitant]
     Active Substance: TRAMADOL
     Indication: PAIN
     Dosage: UNKNOWN
  13. CARBIDOPA. [Concomitant]
     Active Substance: CARBIDOPA
     Indication: NAUSEA
  14. EXELON [Concomitant]
     Active Substance: RIVASTIGMINE TARTRATE
     Indication: DEMENTIA
  15. TRAZODONE [Concomitant]
     Active Substance: TRAZODONE HYDROCHLORIDE
     Indication: SLEEP DISORDER
     Dosage: UNKNOWN

REACTIONS (2)
  - Malaise [Unknown]
  - Somnolence [Unknown]
